FAERS Safety Report 14638418 (Version 1)
Quarter: 2018Q1

REPORT INFORMATION
  Report Type: Spontaneous
  Country: CA (occurrence: CA)
  Receive Date: 20180314
  Receipt Date: 20180314
  Transmission Date: 20180509
  Serious: Yes (Disabling)
  Sender: FDA-Public Use
  Company Number: None

PATIENT
  Age: 64 Year
  Sex: Female
  Weight: 45.36 kg

DRUGS (11)
  1. PARIET [Concomitant]
     Active Substance: RABEPRAZOLE SODIUM
  2. TYLENOL [Concomitant]
     Active Substance: ACETAMINOPHEN
  3. ANNS; SUPPOS [Concomitant]
  4. B VITAMINS [Concomitant]
     Active Substance: CYANOCOBALAMIN\DEXPANTHENOL\NIACINAMIDE\PYRIDOXINE HYDROCHLORIDE\RIBOFLAVIN 5^-PHOSPHATE SODIUM\THIAMINE HYDROCHLORIDE\VITAMIN B COMPLEX
  5. VITAMIN D [Concomitant]
     Active Substance: CHOLECALCIFEROL
  6. ESTRIOL CREAM [Concomitant]
  7. VSL #3 PROBIOTIC [Concomitant]
  8. CIPROFLOXACIN. [Suspect]
     Active Substance: CIPROFLOXACIN
     Route: 048
     Dates: start: 20170410, end: 20170419
  9. FISH OIL [Concomitant]
     Active Substance: FISH OIL
  10. CORTISONE CREAM [Concomitant]
     Active Substance: HYDROCORTISONE
  11. FLAGYL [Concomitant]
     Active Substance: METRONIDAZOLE\METRONIDAZOLE HYDROCHLORIDE

REACTIONS (21)
  - Tinnitus [None]
  - Facial pain [None]
  - Mouth ulceration [None]
  - Paraesthesia [None]
  - Skin irritation [None]
  - Swelling [None]
  - Depression [None]
  - Rash [None]
  - Nausea [None]
  - Fibromyalgia [None]
  - Abdominal pain [None]
  - Bladder pain [None]
  - Musculoskeletal disorder [None]
  - Anxiety [None]
  - Dysgeusia [None]
  - Decreased appetite [None]
  - Diarrhoea [None]
  - Headache [None]
  - Muscular weakness [None]
  - Contusion [None]
  - Blepharospasm [None]

NARRATIVE: CASE EVENT DATE: 20170410
